FAERS Safety Report 9951637 (Version 2)
Quarter: 2014Q1

REPORT INFORMATION
  Report Type: Spontaneous
  Country: US (occurrence: US)
  Receive Date: 20140304
  Receipt Date: 20140306
  Transmission Date: 20141002
  Serious: No
  Sender: FDA-Public Use
  Company Number: US-PFIZER INC-2014059640

PATIENT
  Sex: 0

DRUGS (1)
  1. LYRICA [Suspect]
     Indication: CENTRAL PAIN SYNDROME
     Dosage: UNK

REACTIONS (1)
  - Drug ineffective for unapproved indication [Unknown]
